FAERS Safety Report 15211755 (Version 1)
Quarter: 2018Q3

REPORT INFORMATION
  Report Type: Spontaneous
  Country: US (occurrence: US)
  Receive Date: 20180702
  Receipt Date: 20180702
  Transmission Date: 20181010
  Serious: Yes (Other)
  Sender: FDA-Public Use
  Company Number: None

PATIENT
  Age: 58 Year
  Sex: Female
  Weight: 72 kg

DRUGS (1)
  1. FLONASE [Suspect]
     Active Substance: FLUTICASONE PROPIONATE
     Indication: MULTIPLE ALLERGIES
     Dates: start: 20180521, end: 20180525

REACTIONS (3)
  - Haemorrhage [None]
  - Abdominal pain upper [None]
  - Vaginal haemorrhage [None]

NARRATIVE: CASE EVENT DATE: 20180521
